FAERS Safety Report 15556179 (Version 1)
Quarter: 2018Q4

REPORT INFORMATION
  Report Type: Spontaneous
  Country: US (occurrence: US)
  Receive Date: 20181026
  Receipt Date: 20181026
  Transmission Date: 20190205
  Serious: No
  Sender: FDA-Public Use
  Company Number: US-ALLERGAN-1814894US

PATIENT
  Age: 91 Year
  Sex: Male

DRUGS (2)
  1. LUMIGAN [Concomitant]
     Active Substance: BIMATOPROST
     Indication: PRODUCT USED FOR UNKNOWN INDICATION
     Dosage: UNK
     Route: 047
  2. ALPHAGAN P [Suspect]
     Active Substance: BRIMONIDINE TARTRATE
     Indication: INTRAOCULAR PRESSURE TEST
     Dosage: 2 GTT, BID
     Route: 047
     Dates: start: 20180311

REACTIONS (6)
  - Chest discomfort [Recovered/Resolved]
  - Product dose omission [Unknown]
  - Vision blurred [Unknown]
  - Product container issue [Unknown]
  - Accidental exposure to product [Unknown]
  - Off label use [Unknown]
